FAERS Safety Report 23257786 (Version 2)
Quarter: 2024Q1

REPORT INFORMATION
  Report Type: Spontaneous
  Country: US (occurrence: US)
  Receive Date: 20231204
  Receipt Date: 20240315
  Transmission Date: 20240410
  Serious: No
  Sender: FDA-Public Use
  Company Number: US-BEH-2023165864

PATIENT
  Age: 29 Year
  Sex: Female
  Weight: 95.71 kg

DRUGS (2)
  1. HAEGARDA [Suspect]
     Active Substance: HUMAN C1-ESTERASE INHIBITOR
     Indication: Hereditary angioedema
     Dosage: 6000 INTERNATIONAL UNIT, EVERY 3 DAYS
     Route: 058
  2. HAEGARDA [Suspect]
     Active Substance: HUMAN C1-ESTERASE INHIBITOR
     Indication: Prophylaxis
     Dosage: 6000 INTERNATIONAL UNIT/KILOGRAM, BIW
     Route: 058

REACTIONS (3)
  - Pruritus [Unknown]
  - Rash [Unknown]
  - Malaise [Not Recovered/Not Resolved]
